FAERS Safety Report 7680513-X (Version None)
Quarter: 2011Q3

REPORT INFORMATION
  Report Type: 
  Country: None (occurrence: None)
  Receive Date: 20110812
  Receipt Date: 20110801
  Transmission Date: 20111222
  Serious: Yes (Hospitalization)
  Sender: FDA-Public Use
  Company Number: US-JNJFOC-20090504714

PATIENT
  Sex: Male
  Weight: 65.5 kg

DRUGS (7)
  1. GABAPENTIN [Concomitant]
  2. CLOXACILLIN SODIUM [Concomitant]
     Indication: ILL-DEFINED DISORDER
  3. LANSOPRAZOLE [Concomitant]
  4. PREDNISONE [Concomitant]
  5. VANCOMYCIN [Concomitant]
  6. REMICADE [Suspect]
     Indication: INFLAMMATORY BOWEL DISEASE
     Dosage: 1 DOSE TOTAL
     Route: 042
     Dates: start: 20090308, end: 20090308
  7. TPN [Concomitant]

REACTIONS (1)
  - PANCREATITIS [None]
